FAERS Safety Report 4490592-9 (Version None)
Quarter: 2004Q4

REPORT INFORMATION
  Report Type: 
  Country: None (occurrence: None)
  Receive Date: 20041102
  Receipt Date: 20041022
  Transmission Date: 20050328
  Serious: Yes (Death, Hospitalization)
  Sender: FDA-Public Use
  Company Number: US-MERCK-0410USA03480

PATIENT
  Age: 69 Year
  Sex: Female

DRUGS (5)
  1. VIOXX [Suspect]
     Indication: RHEUMATOID ARTHRITIS
     Route: 048
     Dates: start: 20020101, end: 20040601
  2. VIOXX [Suspect]
     Route: 048
     Dates: start: 20000501
  3. VIOXX [Suspect]
     Route: 048
     Dates: start: 20000501
  4. ENBREL [Concomitant]
     Route: 065
     Dates: start: 20000101
  5. [THERAPY UNSPECIFIED] [Concomitant]
     Route: 065
     Dates: start: 20011201

REACTIONS (4)
  - BLOOD PRESSURE INCREASED [None]
  - CEREBRAL HAEMORRHAGE [None]
  - COMA [None]
  - ESSENTIAL HYPERTENSION [None]
